FAERS Safety Report 6545655-0 (Version None)
Quarter: 2010Q1

REPORT INFORMATION
  Report Type: 
  Country: None (occurrence: None)
  Receive Date: 20100121
  Receipt Date: 20100111
  Transmission Date: 20100710
  Serious: Yes (Hospitalization)
  Sender: FDA-Public Use
  Company Number: PHHY2010CH01188

PATIENT
  Sex: Male

DRUGS (2)
  1. RASILEZ [Suspect]
     Indication: HYPERTENSION
     Dosage: 300 MG DAILY
     Dates: start: 20081202, end: 20090301
  2. RASILEZ HCT [Suspect]
     Indication: HYPERTENSION
     Dosage: 300/25 MG DAILY
     Dates: start: 20090301

REACTIONS (2)
  - CEREBRAL ARTERY EMBOLISM [None]
  - TRANSIENT ISCHAEMIC ATTACK [None]
